FAERS Safety Report 5384444-X (Version None)
Quarter: 2007Q3

REPORT INFORMATION
  Report Type: 
  Country: None (occurrence: None)
  Receive Date: 20070711
  Receipt Date: 20070629
  Transmission Date: 20080115
  Serious: Yes (Other)
  Sender: FDA-Public Use
  Company Number: US-PFIZER INC-2007055444

PATIENT

DRUGS (1)
  1. LYRICA [Suspect]

REACTIONS (2)
  - BLOOD GLUCOSE INCREASED [None]
  - GLUCOSE TOLERANCE IMPAIRED [None]
